FAERS Safety Report 23809193 (Version 2)
Quarter: 2024Q2

REPORT INFORMATION
  Report Type: Spontaneous
  Country: US (occurrence: US)
  Receive Date: 20240502
  Receipt Date: 20240528
  Transmission Date: 20240717
  Serious: No
  Sender: FDA-Public Use
  Company Number: US-GSK-US2024AMR052812

PATIENT
  Sex: Male

DRUGS (1)
  1. FLUTICASONE PROPIONATE [Suspect]
     Active Substance: FLUTICASONE PROPIONATE
     Indication: Product used for unknown indication
     Dosage: UNK, 44 MCG, 10.6G/120

REACTIONS (3)
  - Off label use [Unknown]
  - Product dose omission issue [Unknown]
  - Product complaint [Unknown]
